FAERS Safety Report 8906305 (Version 1)
Quarter: 2012Q4

REPORT INFORMATION
  Report Type: Spontaneous
  Country: IT (occurrence: None)
  Receive Date: 20121107
  Receipt Date: 20121107
  Transmission Date: 20130627
  Serious: Yes (Hospitalization)
  Sender: FDA-Public Use
  Company Number: AUR-APL-2012-04595

PATIENT
  Age: 30 Year
  Sex: Male

DRUGS (1)
  1. FLUCONAZOLE [Suspect]
     Indication: SKIN FUNGAL INFECTION NOS
     Dosage: (1 Dosage forms, 1 D), Oral
     Dates: start: 20120926, end: 20120927

REACTIONS (2)
  - Lip swelling [None]
  - Tongue oedema [None]
